FAERS Safety Report 7074009-6 (Version None)
Quarter: 2010Q4

REPORT INFORMATION
  Report Type: 
  Country: None (occurrence: None)
  Receive Date: 20101029
  Receipt Date: 20101025
  Transmission Date: 20110411
  Serious: Yes (Death, Other)
  Sender: FDA-Public Use
  Company Number: DE-ROCHE-649789

PATIENT

DRUGS (2)
  1. PEGINTERFERON ALFA-2A [Suspect]
     Dosage: STUDY COMPLETED
     Route: 065
  2. RIBASPHERE [Suspect]
     Dosage: DOSE REPORTED: 1000-1200 MG PER DAY. STUDY COMPLETED
     Route: 048

REACTIONS (6)
  - CHEST X-RAY ABNORMAL [None]
  - COMPLETED SUICIDE [None]
  - HAEMOGLOBIN DECREASED [None]
  - LUNG INFECTION [None]
  - NEUTROPHIL COUNT DECREASED [None]
  - PLATELET COUNT DECREASED [None]
